FAERS Safety Report 4646562-0 (Version None)
Quarter: 2005Q2

REPORT INFORMATION
  Report Type: 
  Country: None (occurrence: None)
  Receive Date: 20050427
  Receipt Date: 20041116
  Transmission Date: 20051028
  Serious: Yes (Other)
  Sender: FDA-Public Use
  Company Number: US-GLAXOSMITHKLINE-A0534524A

PATIENT
  Age: 71 Year
  Sex: Male

DRUGS (1)
  1. FLOVENT [Suspect]
     Indication: ILL-DEFINED DISORDER
     Dosage: 2PUFF PER DAY
     Route: 055

REACTIONS (3)
  - COUGH [None]
  - DYSPNOEA [None]
  - HEADACHE [None]
